FAERS Safety Report 15020790 (Version 2)
Quarter: 2018Q3

REPORT INFORMATION
  Report Type: Spontaneous
  Country: US (occurrence: US)
  Receive Date: 20180618
  Receipt Date: 20180831
  Transmission Date: 20181010
  Serious: No
  Sender: FDA-Public Use
  Company Number: US-PFIZER INC-2018245355

PATIENT
  Age: 60 Year
  Sex: Female

DRUGS (1)
  1. XELJANZ XR [Suspect]
     Active Substance: TOFACITINIB CITRATE
     Dosage: 11 MG, UNK
     Dates: start: 201804

REACTIONS (3)
  - Upper respiratory tract infection [Unknown]
  - Ankle fracture [Unknown]
  - Dry eye [Not Recovered/Not Resolved]
